FAERS Safety Report 6601815-1 (Version None)
Quarter: 2010Q1

REPORT INFORMATION
  Report Type: 
  Country: None (occurrence: None)
  Receive Date: 20100218
  Receipt Date: 20100211
  Transmission Date: 20100710
  Serious: Yes (Death, Other)
  Sender: FDA-Public Use
  Company Number: 2010SP006741

PATIENT
  Age: 72 Year
  Sex: Female

DRUGS (3)
  1. TEMODAL [Suspect]
     Indication: GLIOBLASTOMA MULTIFORME
     Dosage: 130 MG; QD; PO
     Route: 048
     Dates: start: 20091027, end: 20091202
  2. LITICAN [Concomitant]
  3. SULFAMETHOXAZOLE AND TRIMETHOPRIM DOUBLE STRENGTH [Concomitant]

REACTIONS (2)
  - PANCYTOPENIA [None]
  - PNEUMONIA [None]
